FAERS Safety Report 8773568 (Version 1)
Quarter: 2012Q4

REPORT INFORMATION
  Report Type: 
  Country: DE (occurrence: DE)
  Receive Date: 20120907
  Receipt Date: 20120907
  Transmission Date: 20130627
  Serious: Yes (Hospitalization)
  Sender: FDA-Public Use
  Company Number: DE-VIIV HEALTHCARE LIMITED-D0076890A

PATIENT
  Age: 40 Year
  Sex: Male
  Weight: 87 kg

DRUGS (2)
  1. KIVEXA [Suspect]
     Indication: HIV INFECTION
     Route: 048
     Dates: start: 200706, end: 201208
  2. KALETRA [Suspect]
     Indication: HIV INFECTION
     Dosage: 2UNIT Twice per day
     Route: 065
     Dates: start: 200706

REACTIONS (2)
  - Acute myocardial infarction [Recovering/Resolving]
  - Coronary artery disease [Recovering/Resolving]
